FAERS Safety Report 4922603-8 (Version None)
Quarter: 2006Q1

REPORT INFORMATION
  Report Type: 
  Country: None (occurrence: None)
  Receive Date: 20060224
  Receipt Date: 20060217
  Transmission Date: 20060701
  Serious: Yes (Other)
  Sender: FDA-Public Use
  Company Number: 435806

PATIENT
  Age: 85 Year
  Sex: Male

DRUGS (3)
  1. DILATREND [Suspect]
     Indication: HYPERTENSION
     Dosage: 12.5MG TWICE PER DAY
     Route: 048
     Dates: start: 20050515, end: 20050615
  2. HYDROCHLOROTHIAZIDE [Concomitant]
     Dates: start: 20050425, end: 20050615
  3. CILAZAPRIL [Concomitant]
     Dates: start: 20050413, end: 20050615

REACTIONS (3)
  - CHEST PAIN [None]
  - DYSPNOEA [None]
  - FATIGUE [None]
